FAERS Safety Report 4903179-8 (Version None)
Quarter: 2006Q1

REPORT INFORMATION
  Report Type: 
  Country: None (occurrence: None)
  Receive Date: 20060207
  Receipt Date: 20060130
  Transmission Date: 20060701
  Serious: Yes (Hospitalization, Disabling)
  Sender: FDA-Public Use
  Company Number: GB-ABBOTT-06P-167-0323603-00

PATIENT
  Age: 37 Year
  Sex: Female
  Weight: 78.6 kg

DRUGS (4)
  1. REDUCTIL [Suspect]
     Indication: OBESITY
     Route: 048
     Dates: start: 20050317, end: 20050413
  2. REDUCTIL [Suspect]
     Route: 048
     Dates: start: 20050413, end: 20050420
  3. NICOTINE [Concomitant]
     Indication: EX-SMOKER
     Route: 062
     Dates: start: 20050104, end: 20050417
  4. PARAMOL-118 [Concomitant]
     Indication: JOINT INJURY
     Route: 048
     Dates: start: 20050307

REACTIONS (2)
  - POST-TRAUMATIC STRESS DISORDER [None]
  - PSYCHOTIC DISORDER [None]
